FAERS Safety Report 6467629-0 (Version None)
Quarter: 2009Q4

REPORT INFORMATION
  Report Type: 
  Country: None (occurrence: None)
  Receive Date: 20091202
  Receipt Date: 20091118
  Transmission Date: 20100525
  Serious: Yes (Hospitalization)
  Sender: FDA-Public Use
  Company Number: PHHY2009GB40641

PATIENT
  Sex: Male

DRUGS (7)
  1. CLOZARIL [Suspect]
     Indication: SCHIZOPHRENIA
     Dosage: 650 MG, UNK
     Route: 048
     Dates: start: 20010508, end: 20090918
  2. CLOZARIL [Suspect]
     Dosage: UNK
  3. HYOSCINE HBR HYT [Concomitant]
     Indication: SALIVARY HYPERSECRETION
     Dosage: 600 UG, UNK
     Route: 048
     Dates: start: 20070411
  4. ASPIRIN [Concomitant]
     Indication: PROPHYLAXIS
     Dosage: 75 MG, UNK
     Route: 048
     Dates: start: 20050101
  5. AMLODIPINE [Concomitant]
     Indication: HYPERTENSION
     Dosage: 5 MG, QD
     Route: 048
     Dates: start: 20060101
  6. BENDROFLUAZIDE [Concomitant]
     Dosage: 2.5 MG, QD
     Route: 048
     Dates: start: 20050101
  7. SIMVASTATIN [Concomitant]
     Indication: HYPERCHOLESTEROLAEMIA
     Dosage: 40 MG, QD
     Route: 048
     Dates: start: 20050101

REACTIONS (5)
  - BLISTER [None]
  - BLOOD POTASSIUM DECREASED [None]
  - ERYTHEMA [None]
  - LOCALISED INFECTION [None]
  - SWELLING [None]
